FAERS Safety Report 8219305-1 (Version None)
Quarter: 2012Q1

REPORT INFORMATION
  Report Type: 
  Country: None (occurrence: None)
  Receive Date: 20120319
  Receipt Date: 20120313
  Transmission Date: 20120608
  Serious: Yes (Death)
  Sender: FDA-Public Use
  Company Number: FR-JNJFOC-20110910189

PATIENT
  Sex: Male
  Weight: 75 kg

DRUGS (10)
  1. ATACAND [Concomitant]
     Route: 048
     Dates: start: 20090101
  2. CELESTAMINE TAB [Concomitant]
     Route: 048
     Dates: start: 20110701
  3. LOVENOX [Concomitant]
     Route: 048
     Dates: start: 20110301
  4. POLYETHYLENE GLYCOL [Concomitant]
     Indication: LAXATIVE SUPPORTIVE CARE
     Route: 065
  5. BETAHISTINE [Concomitant]
     Route: 048
     Dates: start: 20110501
  6. LOXAPINE HCL [Concomitant]
     Route: 048
     Dates: start: 20110301
  7. RISPERDAL CONSTA [Suspect]
     Indication: SCHIZOPHRENIA, PARANOID TYPE
     Route: 030
     Dates: start: 20100708, end: 20110722
  8. AMLODIPINE [Concomitant]
     Route: 048
     Dates: start: 20081201
  9. ESIDRIX [Concomitant]
     Route: 048
     Dates: start: 20090201
  10. VASTAREL [Concomitant]
     Route: 048
     Dates: start: 20110501

REACTIONS (3)
  - TORSADE DE POINTES [None]
  - HYPOKALAEMIA [None]
  - CARDIAC ARREST [None]
